FAERS Safety Report 8437824-X (Version None)
Quarter: 2012Q2

REPORT INFORMATION
  Report Type: 
  Country: None (occurrence: None)
  Receive Date: 20120614
  Receipt Date: 20120515
  Transmission Date: 20120825
  Serious: No
  Sender: FDA-Public Use
  Company Number: US-AMGEN-USASP2012028896

PATIENT
  Age: 64 Year
  Sex: Female

DRUGS (9)
  1. LIPITOR [Concomitant]
     Dosage: UNK
  2. CALCIUM [Concomitant]
     Dosage: UNK
  3. VITAMIN B12                        /00056201/ [Concomitant]
     Indication: PERNICIOUS ANAEMIA
     Dosage: UNK
  4. CYMBALTA [Concomitant]
     Dosage: UNK
  5. PROLIA [Suspect]
     Dosage: 60 MG, UNK
     Dates: start: 20111001
  6. LASIX [Concomitant]
     Dosage: UNK
  7. PROLIA [Suspect]
     Indication: OSTEOPOROSIS
     Dosage: 60 MG, UNK
     Dates: start: 20110101
  8. PROLIA [Suspect]
     Dosage: 60 MG, UNK
     Dates: start: 20120417
  9. THYROID THERAPY [Concomitant]
     Dosage: UNK

REACTIONS (5)
  - RASH PAPULAR [None]
  - RASH PRURITIC [None]
  - MUSCULOSKELETAL STIFFNESS [None]
  - NECK PAIN [None]
  - BACK PAIN [None]
